FAERS Safety Report 8326179 (Version 3)
Quarter: 2013Q1

REPORT INFORMATION
  Report Type: Spontaneous
  Country: US (occurrence: US)
  Receive Date: 20120106
  Receipt Date: 20130304
  Transmission Date: 20140127
  Serious: Yes (Other)
  Sender: FDA-Public Use
  Company Number: US-RB-036051-12

PATIENT
  Age: 0 None
  Sex: Male
  Weight: 3.6 kg

DRUGS (6)
  1. SUBOXONE FILM [Suspect]
     Indication: DRUG DEPENDENCE
     Route: 064
     Dates: start: 201103, end: 201107
  2. SUBUTEX [Suspect]
     Indication: DRUG DEPENDENCE
     Route: 064
     Dates: start: 201107, end: 201111
  3. SUBUTEX [Suspect]
     Dosage: TAPERED DOSES
     Route: 064
     Dates: start: 201111, end: 20111211
  4. NICOTINE [Suspect]
     Indication: PRODUCT USED FOR UNKNOWN INDICATION
     Dosage: UNKNOWN DOSING DETAILS
     Route: 064
  5. CELEXA [Suspect]
     Indication: PRODUCT USED FOR UNKNOWN INDICATION
     Dosage: REPORTED TAKING CELEXA WITH AN END DATE IN FIRST TRIMESTER-DOING DETAILS UNKNOWN
     Route: 064
  6. VISTARIL [Concomitant]
     Indication: PRODUCT USED FOR UNKNOWN INDICATION
     Dosage: REPORTED MOTHER STOPPED TAKING VISTARIL IN FIRST TRIMESTER-DOSING DETAILS UNKNOWN
     Route: 064

REACTIONS (5)
  - Foetal exposure during pregnancy [Recovered/Resolved]
  - Tremor neonatal [Recovered/Resolved]
  - Low birth weight baby [Recovered/Resolved]
  - Hypophagia [Recovered/Resolved]
  - Iron deficiency [Unknown]
